FAERS Safety Report 18351073 (Version 1)
Quarter: 2020Q4

REPORT INFORMATION
  Report Type: Spontaneous
  Country: US (occurrence: US)
  Receive Date: 20201006
  Receipt Date: 20201006
  Transmission Date: 20210114
  Serious: No
  Sender: FDA-Public Use
  Company Number: US-ELI_LILLY_AND_COMPANY-US202010000439

PATIENT
  Sex: Male

DRUGS (2)
  1. HUMATROPE [Suspect]
     Active Substance: SOMATROPIN
     Indication: PRODUCT USED FOR UNKNOWN INDICATION
     Dosage: 2.2 MG, UNKNOWN
     Route: 065
     Dates: start: 20200812
  2. HUMATROPE [Suspect]
     Active Substance: SOMATROPIN
     Indication: PRODUCT USED FOR UNKNOWN INDICATION
     Dosage: 2.1 MG, UNKNOWN
     Route: 065
     Dates: end: 20200812

REACTIONS (3)
  - Personality change [Unknown]
  - Wrong dose [Unknown]
  - Wrong technique in product usage process [Unknown]
